FAERS Safety Report 24606658 (Version 1)
Quarter: 2024Q4

REPORT INFORMATION
  Report Type: Other
  Country: BG (occurrence: BG)
  Receive Date: 20241112
  Receipt Date: 20241112
  Transmission Date: 20250114
  Serious: Yes (Hospitalization, Other)
  Sender: COREPHARMA LLC
  Company Number: BG-CorePharma LLC-2164895

PATIENT
  Age: 87 Year
  Sex: Female

DRUGS (6)
  1. HYDROCHLOROTHIAZIDE\LISINOPRIL [Suspect]
     Active Substance: HYDROCHLOROTHIAZIDE\LISINOPRIL
     Indication: Hypertension
  2. PROPAFENONE [Suspect]
     Active Substance: PROPAFENONE
  3. CYANOCOBALAMIN [Concomitant]
     Active Substance: CYANOCOBALAMIN
  4. Benfotiamine/Pyridoxine hydrochloride [Concomitant]
  5. CARBAMAZEPINE [Concomitant]
     Active Substance: CARBAMAZEPINE
  6. BISOPROLOL FUMARATE [Suspect]
     Active Substance: BISOPROLOL FUMARATE

REACTIONS (3)
  - Basal cell carcinoma [Recovering/Resolving]
  - Keratoacanthoma [Recovering/Resolving]
  - Squamous cell carcinoma [Recovering/Resolving]
